FAERS Safety Report 6768163-0 (Version None)
Quarter: 2010Q2

REPORT INFORMATION
  Report Type: 
  Country: None (occurrence: None)
  Receive Date: 20100610
  Receipt Date: 20100526
  Transmission Date: 20101027
  Serious: Yes (Death, Life-Threatening, Other)
  Sender: FDA-Public Use
  Company Number: 2010001955

PATIENT
  Age: 45 Year
  Sex: Male

DRUGS (6)
  1. ERLOTINIB/PLACEBO         (TABLET) [Suspect]
     Indication: NON-SMALL CELL LUNG CANCER
     Dosage: ORAL
     Route: 048
     Dates: start: 20100415, end: 20100504
  2. GEMCITABINE [Suspect]
     Indication: NON-SMALL CELL LUNG CANCER
     Dosage: (2000 MG, 2X PER 1
     Dates: start: 20100407, end: 20100504
  3. CARBOPLATIN [Suspect]
     Indication: NON-SMALL CELL LUNG CANCER
     Dosage: (495 MG, 1X PER 1 MONTH), INTRAVENOUS
     Route: 042
     Dates: start: 20100407, end: 20100504
  4. CODEINE SUL TAB [Concomitant]
  5. ACETAMINOPHEN [Concomitant]
  6. NEURODEX (NEUROBION FOR INJECTION) [Concomitant]

REACTIONS (10)
  - BLOOD BERYLLIUM DECREASED [None]
  - BLOOD BICARBONATE DECREASED [None]
  - BLOOD GLUCOSE INCREASED [None]
  - BLOOD PH DECREASED [None]
  - CHEST X-RAY ABNORMAL [None]
  - DYSPNOEA [None]
  - LOBAR PNEUMONIA [None]
  - PLEURAL EFFUSION [None]
  - RESPIRATORY FAILURE [None]
  - SEPSIS [None]
